FAERS Safety Report 15854906 (Version 1)
Quarter: 2019Q1

REPORT INFORMATION
  Report Type: Spontaneous
  Country: IT (occurrence: IT)
  Receive Date: 20190122
  Receipt Date: 20190122
  Transmission Date: 20190417
  Serious: Yes (Other)
  Sender: FDA-Public Use
  Company Number: IT-MYLANLABS-2019M1004078

PATIENT
  Age: 32 Year
  Sex: Male
  Weight: 90 kg

DRUGS (2)
  1. CAPECITABINE. [Suspect]
     Active Substance: CAPECITABINE
     Indication: ADENOCARCINOMA OF COLON
     Dosage: 4000 MILLIGRAM, CYCLE
     Route: 048
     Dates: start: 20170901
  2. OXALIPLATIN. [Suspect]
     Active Substance: OXALIPLATIN
     Indication: ADENOCARCINOMA OF COLON
     Dosage: 260 MILLIGRAM, CYCLE
     Route: 042
     Dates: start: 20170901

REACTIONS (5)
  - Abdominal pain [Recovering/Resolving]
  - Hyperbilirubinaemia [Recovering/Resolving]
  - Biliary colic [Recovering/Resolving]
  - Chromaturia [Recovering/Resolving]
  - Faeces pale [Recovering/Resolving]

NARRATIVE: CASE EVENT DATE: 20180116
